FAERS Safety Report 6318600-0 (Version None)
Quarter: 2009Q3

REPORT INFORMATION
  Report Type: 
  Country: None (occurrence: None)
  Receive Date: 20090821
  Receipt Date: 20090810
  Transmission Date: 20100115
  Serious: Yes (Other)
  Sender: FDA-Public Use
  Company Number: US-ELI_LILLY_AND_COMPANY-US200906003275

PATIENT
  Sex: Female

DRUGS (13)
  1. CYMBALTA [Suspect]
     Indication: PAIN
     Dosage: 60 MG, 2/D
     Route: 064
     Dates: start: 20081003
  2. CYMBALTA [Suspect]
     Dosage: 60 MG, DAILY (1/D)
     Route: 064
     Dates: start: 20081001
  3. CYMBALTA [Suspect]
     Dosage: 90 MG, UNK
     Route: 064
     Dates: start: 20060920
  4. CYMBALTA [Suspect]
     Dosage: 120 MG, DAILY (1/D)
     Dates: end: 20090417
  5. HUMALOG [Suspect]
     Dosage: UNK, UNK
     Route: 064
     Dates: end: 20090417
  6. LAMICTAL [Concomitant]
     Dosage: 300 MG, 2/D
     Route: 064
  7. LAMICTAL [Concomitant]
     Dosage: 90 MG, UNK
     Route: 064
  8. LAMICTAL [Concomitant]
     Dosage: 100 MG, 2/D
     Route: 064
  9. LAMICTAL [Concomitant]
     Dosage: 200 MG, 2/D
     Route: 064
  10. PREDNISONE [Concomitant]
     Dosage: 30 MG, DAILY (1/D)
     Route: 064
     Dates: start: 20080101, end: 20090417
  11. TOPROL-XL [Concomitant]
     Dosage: 25 MG, DAILY (1/D)
     Route: 064
     Dates: start: 20060101, end: 20090417
  12. OXYCODONE [Concomitant]
     Dosage: 20 MG, 2/D
     Route: 064
     Dates: start: 20060101, end: 20090417
  13. LOVENOX [Concomitant]
     Dosage: UNK, UNK
     Route: 064
     Dates: end: 20090417

REACTIONS (2)
  - DRUG EXPOSURE DURING PREGNANCY [None]
  - PREMATURE BABY [None]
